FAERS Safety Report 6969518-1 (Version None)
Quarter: 2010Q3

REPORT INFORMATION
  Report Type: 
  Country: None (occurrence: None)
  Receive Date: 20100907
  Receipt Date: 20100907
  Transmission Date: 20110219
  Serious: Yes (Other)
  Sender: FDA-Public Use
  Company Number: None

PATIENT
  Age: 38 Year
  Sex: Female
  Weight: 64.4108 kg

DRUGS (1)
  1. ZRYTEC 10MG ZRYTEC [Suspect]
     Indication: HYPERSENSITIVITY
     Dosage: 1  1 PER DAY PO
     Route: 048
     Dates: start: 20070401, end: 20100828

REACTIONS (7)
  - ACTIVITIES OF DAILY LIVING IMPAIRED [None]
  - DRUG WITHDRAWAL SYNDROME [None]
  - FATIGUE [None]
  - FEELING HOT [None]
  - PAIN [None]
  - PRURITUS GENERALISED [None]
  - URTICARIA [None]
